FAERS Safety Report 8261244-4 (Version None)
Quarter: 2012Q2

REPORT INFORMATION
  Report Type: 
  Country: None (occurrence: None)
  Receive Date: 20120405
  Receipt Date: 20120327
  Transmission Date: 20120825
  Serious: Yes (Other)
  Sender: FDA-Public Use
  Company Number: JP-VERTEX PHARMACEUTICALS INC.-AE-2012-004590

PATIENT
  Age: 62 Year
  Sex: Female

DRUGS (14)
  1. PEG-INTRON [Concomitant]
     Route: 058
     Dates: start: 20120214, end: 20120220
  2. PEG-INTRON [Concomitant]
     Indication: HEPATITIS C
     Route: 058
     Dates: start: 20120207, end: 20120213
  3. TELAVIC (TELAPREVIR) [Suspect]
     Indication: HEPATITIS C
     Route: 048
     Dates: start: 20120207, end: 20120305
  4. INSULIN 30 MIX [Concomitant]
  5. REBETOL [Concomitant]
     Route: 048
     Dates: start: 20120322
  6. PROMACTA [Concomitant]
  7. TELAVIC (TELAPREVIR) [Suspect]
     Route: 048
     Dates: start: 20120313
  8. REBETOL [Concomitant]
     Indication: HEPATITIS C
     Route: 048
     Dates: start: 20120207, end: 20120227
  9. PEG-INTRON [Concomitant]
     Route: 058
     Dates: start: 20120221, end: 20120227
  10. TELAVIC (TELAPREVIR) [Suspect]
     Route: 048
     Dates: start: 20120306, end: 20120312
  11. REBETOL [Concomitant]
     Route: 048
     Dates: start: 20120228, end: 20120321
  12. PEG-INTRON [Concomitant]
     Route: 058
     Dates: start: 20120228
  13. DIFLUNISAL [Concomitant]
  14. CANDESARTAN CILEXETIL [Concomitant]

REACTIONS (2)
  - MALAISE [None]
  - DIZZINESS [None]
